FAERS Safety Report 9187390 (Version 1)
Quarter: 2013Q1

REPORT INFORMATION
  Report Type: Spontaneous
  Country: CH (occurrence: CH)
  Receive Date: 20130325
  Receipt Date: 20130325
  Transmission Date: 20140127
  Serious: Yes (Death, Other)
  Sender: FDA-Public Use
  Company Number: CH-BRISTOL-MYERS SQUIBB COMPANY-17483736

PATIENT
  Age: 49 Year
  Sex: Female

DRUGS (1)
  1. ORENCIA [Suspect]
     Indication: RHEUMATOID ARTHRITIS
     Dosage: LAST DOSE ON 22FEB2013
     Route: 042
     Dates: start: 20110405

REACTIONS (4)
  - Multi-organ failure [Fatal]
  - Pneumonia [Fatal]
  - Diabetes mellitus [Unknown]
  - Pancreas islet cell transplant [Unknown]
